FAERS Safety Report 6372056-0 (Version None)
Quarter: 2009Q3

REPORT INFORMATION
  Report Type: 
  Country: None (occurrence: None)
  Receive Date: 20090917
  Receipt Date: 20090909
  Transmission Date: 20100115
  Serious: Yes (Death, Other)
  Sender: FDA-Public Use
  Company Number: 230058J09BRA

PATIENT
  Age: 50 Year
  Sex: Female

DRUGS (4)
  1. REBIF [Suspect]
     Indication: MULTIPLE SCLEROSIS
     Dosage: 22 M CG, 44 MCG, 3 IN 1 WEEKS
     Dates: start: 20020403, end: 20020501
  2. REBIF [Suspect]
     Indication: MULTIPLE SCLEROSIS
     Dosage: 22 M CG, 44 MCG, 3 IN 1 WEEKS
     Dates: start: 20020501, end: 20081210
  3. REBIF [Suspect]
     Indication: MULTIPLE SCLEROSIS
     Dosage: 22 M CG, 44 MCG, 3 IN 1 WEEKS
     Dates: start: 20090317, end: 20090411
  4. METHOTREXATE (METHOTREXATE) [Concomitant]

REACTIONS (1)
  - SYNCOPE [None]
